FAERS Safety Report 8555333-4 (Version None)
Quarter: 2012Q3

REPORT INFORMATION
  Report Type: 
  Country: None (occurrence: None)
  Receive Date: 20120731
  Receipt Date: 20110815
  Transmission Date: 20120928
  Serious: No
  Sender: FDA-Public Use
  Company Number: US-ASTRAZENECA-2011SE48798

PATIENT
  Age: 52 Year
  Sex: Female

DRUGS (3)
  1. MIRTAZAPINE [Concomitant]
     Indication: DEPRESSION
  2. MIRTAZAPINE [Concomitant]
     Indication: INSOMNIA
  3. QUETIAPINE [Suspect]
     Indication: SEDATION
     Route: 048

REACTIONS (1)
  - INTENTIONAL DRUG MISUSE [None]
